FAERS Safety Report 23011108 (Version 3)
Quarter: 2023Q4

REPORT INFORMATION
  Report Type: Spontaneous
  Country: US (occurrence: US)
  Receive Date: 20230929
  Receipt Date: 20231110
  Transmission Date: 20240109
  Serious: Yes (Hospitalization, Other)
  Sender: FDA-Public Use
  Company Number: US-BAYER-2023A133966

PATIENT
  Age: 19 Year
  Sex: Female

DRUGS (1)
  1. BAYER ASPIRIN [Suspect]
     Active Substance: ASPIRIN
     Dosage: 78 DF, ONCE

REACTIONS (5)
  - Suicide attempt [None]
  - Nausea [Unknown]
  - Tinnitus [Unknown]
  - Toxicity to various agents [Recovering/Resolving]
  - Intentional overdose [Recovering/Resolving]
